FAERS Safety Report 5175414-5 (Version None)
Quarter: 2006Q4

REPORT INFORMATION
  Report Type: 
  Country: None (occurrence: None)
  Receive Date: 20061215
  Receipt Date: 20060705
  Transmission Date: 20070319
  Serious: Yes (Hospitalization)
  Sender: FDA-Public Use
  Company Number: JP-BAYER-200610879BYL

PATIENT
  Age: 19 Year
  Sex: Female
  Weight: 45 kg

DRUGS (6)
  1. AVELOX [Suspect]
     Indication: BRONCHITIS ACUTE
     Dosage: TOTAL DAILY DOSE: 400 MG  UNIT DOSE: 400 MG
     Route: 048
     Dates: start: 20060621, end: 20060624
  2. PL GRANULE [Suspect]
     Indication: BRONCHITIS ACUTE
     Dosage: TOTAL DAILY DOSE: 3 G  UNIT DOSE: 1 G
     Route: 048
     Dates: start: 20060619, end: 20060624
  3. MEDICON [Suspect]
     Indication: BRONCHITIS ACUTE
     Dosage: TOTAL DAILY DOSE: 60 MG  UNIT DOSE: 15 MG
     Route: 048
     Dates: start: 20060619, end: 20060624
  4. KLARICID [Concomitant]
     Indication: BRONCHITIS ACUTE
     Dosage: TOTAL DAILY DOSE: 400 MG  UNIT DOSE: 200 MG
     Route: 048
     Dates: start: 20060619, end: 20060621
  5. MUCOSAL [Concomitant]
     Indication: BRONCHITIS ACUTE
     Dosage: TOTAL DAILY DOSE: 45 MG  UNIT DOSE: 15 MG
     Route: 048
     Dates: start: 20060619, end: 20060624
  6. HOKUNALIN:TAPE [Concomitant]
     Indication: BRONCHITIS ACUTE
     Dosage: TOTAL DAILY DOSE: 2 MG  UNIT DOSE: 2 MG
     Route: 062
     Dates: start: 20060619, end: 20060624

REACTIONS (1)
  - EOSINOPHILIC PNEUMONIA [None]
